FAERS Safety Report 7796971-6 (Version None)
Quarter: 2011Q4

REPORT INFORMATION
  Report Type: 
  Country: None (occurrence: None)
  Receive Date: 20111005
  Receipt Date: 20111005
  Transmission Date: 20120403
  Serious: Yes (Other)
  Sender: FDA-Public Use
  Company Number: None

PATIENT
  Age: 33 Year
  Sex: Female
  Weight: 77.11 kg

DRUGS (1)
  1. NASONEX [Suspect]
     Indication: UPPER RESPIRATORY TRACT CONGESTION
     Dosage: 28 METERED SPRAY -SAMPLE-
     Route: 045
     Dates: start: 20110401, end: 20111004

REACTIONS (2)
  - TINNITUS [None]
  - HYPERACUSIS [None]
